FAERS Safety Report 8462925-X (Version None)
Quarter: 2012Q2

REPORT INFORMATION
  Report Type: 
  Country: None (occurrence: None)
  Receive Date: 20120625
  Receipt Date: 20120322
  Transmission Date: 20120825
  Serious: Yes (Other)
  Sender: FDA-Public Use
  Company Number: US-ROCHE-1042320

PATIENT
  Sex: Female
  Weight: 59.02 kg

DRUGS (3)
  1. XELODA [Suspect]
     Indication: BREAST CANCER METASTATIC
     Dosage: FREQ: EVERY OTHER DAY
     Route: 048
     Dates: start: 20120215, end: 20120605
  2. XELODA [Suspect]
     Indication: METASTASES TO BONE
  3. TAXOTERE [Concomitant]
     Indication: BREAST CANCER METASTATIC
     Route: 042
     Dates: start: 20120215

REACTIONS (6)
  - STOMATITIS [None]
  - OEDEMA PERIPHERAL [None]
  - PALMAR-PLANTAR ERYTHRODYSAESTHESIA SYNDROME [None]
  - ABASIA [None]
  - ERYTHEMA [None]
  - HYPERKERATOSIS [None]
